FAERS Safety Report 8444596-1 (Version None)
Quarter: 2012Q2

REPORT INFORMATION
  Report Type: 
  Country: None (occurrence: None)
  Receive Date: 20120618
  Receipt Date: 20120612
  Transmission Date: 20120825
  Serious: Yes (Hospitalization)
  Sender: FDA-Public Use
  Company Number: US-BAYER-2012-048526

PATIENT
  Age: 24 Year
  Sex: Female
  Weight: 49.887 kg

DRUGS (3)
  1. LORAZEPAM [Concomitant]
     Indication: ANXIETY
     Dosage: 0.5 MG, UNK
  2. YAZ [Suspect]
     Indication: CONTRACEPTION
     Dosage: UNK
     Route: 048
     Dates: start: 20101101, end: 20111206
  3. LEXAPRO [Concomitant]
     Dosage: 12.5 MG, QD

REACTIONS (2)
  - PULMONARY EMBOLISM [None]
  - CHEST PAIN [None]
